FAERS Safety Report 15937657 (Version 1)
Quarter: 2019Q1

REPORT INFORMATION
  Report Type: Spontaneous
  Country: TN (occurrence: TN)
  Receive Date: 20190208
  Receipt Date: 20190208
  Transmission Date: 20190417
  Serious: Yes (Hospitalization, Other)
  Sender: FDA-Public Use
  Company Number: TN-ASCEND THERAPEUTICS-2062359

PATIENT
  Age: 32 Year
  Sex: Female

DRUGS (2)
  1. ESTROGEL [Suspect]
     Active Substance: ESTRADIOL
     Indication: ADENOMYOSIS
  2. DYDROGESTERONE (DYDROGESTERONE) [Concomitant]
     Active Substance: DYDROGESTERONE

REACTIONS (1)
  - Pulmonary embolism [Unknown]
